FAERS Safety Report 4353678-5 (Version None)
Quarter: 2004Q2

REPORT INFORMATION
  Report Type: 
  Country: None (occurrence: None)
  Receive Date: 20040430
  Receipt Date: 20040423
  Transmission Date: 20050107
  Serious: Yes (Hospitalization)
  Sender: FDA-Public Use
  Company Number: 2004UW05737

PATIENT
  Age: 40 Year
  Sex: Female
  Weight: 139.2543 kg

DRUGS (5)
  1. SEROQUEL [Suspect]
     Indication: SCHIZOAFFECTIVE DISORDER
     Dosage: 200 MG TID-QID
     Dates: start: 20040202, end: 20040301
  2. CLOZARIL [Suspect]
     Indication: SCHIZOAFFECTIVE DISORDER
     Dosage: 200-300 MG
     Dates: start: 20031211, end: 20040202
  3. ABILIFY [Concomitant]
  4. ATIVAN [Concomitant]
  5. LEXAPRO [Concomitant]

REACTIONS (3)
  - DIZZINESS [None]
  - FALL [None]
  - MENTAL DISORDER [None]
